FAERS Safety Report 10533659 (Version 1)
Quarter: 2014Q4

REPORT INFORMATION
  Report Type: Spontaneous
  Country: US (occurrence: None)
  Receive Date: 20141021
  Receipt Date: 20141021
  Transmission Date: 20150529
  Serious: Yes (Life-Threatening, Hospitalization, Disabling)
  Sender: FDA-Public Use
  Company Number: None

PATIENT
  Age: 64 Year
  Sex: Male
  Weight: 90.72 kg

DRUGS (2)
  1. ANDROGEL [Suspect]
     Active Substance: TESTOSTERONE
     Indication: BLOOD TESTOSTERONE ABNORMAL
     Dosage: ONCE DAILY 6 YEARS
  2. AXIRON [Suspect]
     Active Substance: TESTOSTERONE
     Indication: BLOOD TESTOSTERONE ABNORMAL
     Dosage: 1 UNDERARM APPLICATION ONCE DAILY

REACTIONS (10)
  - Cerebrovascular accident [None]
  - Cognitive disorder [None]
  - Amnesia [None]
  - Brain injury [None]
  - Judgement impaired [None]
  - Road traffic accident [None]
  - Disturbance in attention [None]
  - Job dissatisfaction [None]
  - Activities of daily living impaired [None]
  - Impaired driving ability [None]

NARRATIVE: CASE EVENT DATE: 20140908
